FAERS Safety Report 8532795-X (Version None)
Quarter: 2012Q3

REPORT INFORMATION
  Report Type: 
  Country: None (occurrence: None)
  Receive Date: 20120724
  Receipt Date: 20120719
  Transmission Date: 20120928
  Serious: Yes (Hospitalization)
  Sender: FDA-Public Use
  Company Number: PHFR2012GB003919

PATIENT
  Sex: Female

DRUGS (6)
  1. CLOZARIL [Suspect]
     Dosage: 275 MG, QD
     Route: 048
  2. METFORMIN HYDROCHLORIDE [Concomitant]
     Indication: TYPE 2 DIABETES MELLITUS
     Dosage: 1500 MG, UNK
     Route: 048
  3. CLOZARIL [Suspect]
     Dosage: 300 MG, UNK
     Route: 048
     Dates: start: 20070101
  4. AMISULPRIDE [Concomitant]
     Dosage: 200 MG, UNK
     Route: 048
  5. PRESABALIN [Concomitant]
     Indication: ANXIETY
     Dosage: 150 MG, UNK
  6. CLOZARIL [Suspect]
     Indication: SCHIZOPHRENIA, PARANOID TYPE
     Route: 048
     Dates: start: 20070219

REACTIONS (6)
  - ENTEROCOLITIS INFECTIOUS [None]
  - ABDOMINAL PAIN UPPER [None]
  - NEUTROPHIL COUNT INCREASED [None]
  - PYREXIA [None]
  - VOMITING [None]
  - WHITE BLOOD CELL COUNT INCREASED [None]
